FAERS Safety Report 8618986-8 (Version None)
Quarter: 2012Q3

REPORT INFORMATION
  Report Type: 
  Country: None (occurrence: None)
  Receive Date: 20120824
  Receipt Date: 20120820
  Transmission Date: 20120928
  Serious: Yes (Other)
  Sender: FDA-Public Use
  Company Number: PHHY2012BR063853

PATIENT
  Sex: Male

DRUGS (7)
  1. SIMVASTATIN [Concomitant]
     Indication: BLOOD CHOLESTEROL
     Dosage: 1 DF, DAILY
  2. METFORMIN HCL [Concomitant]
     Indication: DIABETES MELLITUS
     Dosage: 3 DF, DAILY
  3. GLYBURIDE [Concomitant]
     Indication: DIABETES MELLITUS
     Dosage: 1 DF, DAILY
  4. ASPIRIN [Concomitant]
     Indication: BLOOD DISORDER
     Dosage: 2 DF, DAILY
  5. DIOVAN [Suspect]
     Indication: BLOOD PRESSURE
     Dosage: 1 DF (160MG VALS/ 10MG AMLO/ 25MG HCT), DAILY
  6. HYDROCHLOROTHIAZIDE [Concomitant]
     Indication: BLOOD PRESSURE
     Dosage: 1 DF, DAILY
  7. LEVOTHYROXINE SODIUM [Concomitant]
     Indication: THYROXINE THERAPY

REACTIONS (1)
  - CARDIAC DISORDER [None]
